FAERS Safety Report 6517916-2 (Version None)
Quarter: 2009Q4

REPORT INFORMATION
  Report Type: 
  Country: None (occurrence: None)
  Receive Date: 20091224
  Receipt Date: 20091221
  Transmission Date: 20100525
  Serious: Yes (Life-Threatening)
  Sender: FDA-Public Use
  Company Number: NL-ROCHE-675914

PATIENT
  Sex: Female

DRUGS (4)
  1. AVASTIN [Suspect]
     Route: 042
  2. CAPECITABINE [Suspect]
     Dosage: FREQUENCY: BID FOR 2 WEEKS, 1 WEEK OFF
     Route: 048
  3. ELOXATIN [Suspect]
     Route: 042
  4. PRIMPERAN TAB [Concomitant]
     Dosage: FREQUENCY: IF NECESSARY
     Route: 048

REACTIONS (2)
  - ELECTROCARDIOGRAM QT PROLONGED [None]
  - VENTRICULAR FIBRILLATION [None]
